FAERS Safety Report 8327589-4 (Version None)
Quarter: 2012Q2

REPORT INFORMATION
  Report Type: 
  Country: None (occurrence: None)
  Receive Date: 20120502
  Receipt Date: 20120427
  Transmission Date: 20120825
  Serious: Yes (Life-Threatening, Hospitalization)
  Sender: FDA-Public Use
  Company Number: US-BAYER-2012-009280

PATIENT
  Age: 49 Year
  Sex: Female
  Weight: 50 kg

DRUGS (8)
  1. YASMIN [Suspect]
     Indication: CONTRACEPTION
     Dosage: UNK
     Dates: start: 20071018, end: 20090610
  2. PEXEVA [Concomitant]
  3. YAZ [Suspect]
     Indication: CONTRACEPTION
     Dosage: UNK
     Dates: start: 20070201, end: 20090601
  4. YAZ [Suspect]
     Indication: PREMENSTRUAL SYNDROME
  5. DIGOXIN [Concomitant]
  6. YAZ [Suspect]
     Indication: MENOMETRORRHAGIA
  7. IRON [Concomitant]
  8. YASMIN [Suspect]
     Indication: PREMENSTRUAL SYNDROME

REACTIONS (4)
  - DEEP VEIN THROMBOSIS [None]
  - PAIN [None]
  - ANHEDONIA [None]
  - ANXIETY [None]
